FAERS Safety Report 10029610 (Version 1)
Quarter: 2014Q1

REPORT INFORMATION
  Report Type: Spontaneous
  Country: US (occurrence: None)
  Receive Date: 20140320
  Receipt Date: 20140320
  Transmission Date: 20141002
  Serious: Yes (Other)
  Sender: FDA-Public Use
  Company Number: None

PATIENT
  Age: 44 Year
  Sex: Female
  Weight: 75.5 kg

DRUGS (2)
  1. BOTOX COSMETIC [Suspect]
     Indication: SKIN WRINKLING
     Dosage: 13UNITS GLABELLA ?8UNITS FRONTIALIS ?ONCE IM
     Route: 030
     Dates: start: 20140215
  2. BOTOX COSMETIC [Suspect]
     Dosage: 8UNITS/SIDE LATERAL CANTHAL ?ONCE IM
     Route: 030

REACTIONS (4)
  - Eye swelling [None]
  - Urticaria [None]
  - Drug hypersensitivity [None]
  - Paresis [None]
